FAERS Safety Report 5455620-2 (Version None)
Quarter: 2007Q3

REPORT INFORMATION
  Report Type: 
  Country: None (occurrence: None)
  Receive Date: 20070913
  Receipt Date: 20070913
  Transmission Date: 20080115
  Serious: Yes (Other)
  Sender: FDA-Public Use
  Company Number: None

PATIENT
  Age: 60 Year
  Sex: Female
  Weight: 63.5036 kg

DRUGS (2)
  1. PREVACID [Suspect]
     Indication: ABDOMINAL DISCOMFORT
     Dates: start: 20070606, end: 20070612
  2. PREVACID [Suspect]
     Indication: PROPHYLAXIS
     Dates: start: 20070606, end: 20070612

REACTIONS (3)
  - EARLY SATIETY [None]
  - NAUSEA [None]
  - WEIGHT DECREASED [None]
